FAERS Safety Report 15814089 (Version 1)
Quarter: 2019Q1

REPORT INFORMATION
  Report Type: Spontaneous
  Country: US (occurrence: US)
  Receive Date: 20190111
  Receipt Date: 20190111
  Transmission Date: 20190417
  Serious: No
  Sender: FDA-Public Use
  Company Number: US-JAZZ-2018-US-006982

PATIENT
  Age: 31 Year
  Sex: Female

DRUGS (5)
  1. PRIALT [Suspect]
     Active Substance: ZICONOTIDE ACETATE
     Indication: PAIN
     Dosage: UNK ?G, QH
     Route: 037
     Dates: start: 20180227
  2. BUPIVACAINE. [Suspect]
     Active Substance: BUPIVACAINE
     Indication: PAIN
     Dosage: UNK MG, QH
     Route: 037
  3. DILAUDID [Suspect]
     Active Substance: HYDROMORPHONE HYDROCHLORIDE
     Indication: PAIN
     Dosage: UNK MG, QH
     Route: 048
  4. CLONIDINE. [Suspect]
     Active Substance: CLONIDINE
     Indication: PAIN
     Dosage: UNK ?G, UNK
     Route: 037
  5. MORPHINE [Suspect]
     Active Substance: MORPHINE
     Indication: PAIN
     Dosage: UNK MG, UNK
     Route: 037

REACTIONS (3)
  - Drug ineffective [Unknown]
  - Fall [Recovered/Resolved]
  - Incontinence [Unknown]

NARRATIVE: CASE EVENT DATE: 20080227
